FAERS Safety Report 8353525-0 (Version None)
Quarter: 2012Q2

REPORT INFORMATION
  Report Type: 
  Country: None (occurrence: None)
  Receive Date: 20120511
  Receipt Date: 20110511
  Transmission Date: 20120825
  Serious: No
  Sender: FDA-Public Use
  Company Number: US-GLAXOSMITHKLINE-A0927006A

PATIENT
  Age: 73 Year
  Sex: Female

DRUGS (2)
  1. TYKERB [Suspect]
     Route: 065
  2. UNKNOWN MEDICATION [Concomitant]

REACTIONS (1)
  - INCREASED UPPER AIRWAY SECRETION [None]
